FAERS Safety Report 8556402 (Version 4)
Quarter: 2012Q4

REPORT INFORMATION
  Report Type: Report from Study
  Country: US (occurrence: US)
  Receive Date: 20120510
  Receipt Date: 20121003
  Transmission Date: 20130627
  Serious: Yes (Hospitalization, Other)
  Sender: FDA-Public Use
  Company Number: US-BRISTOL-MYERS SQUIBB COMPANY-16562308

PATIENT
  Age: 55 Year
  Sex: Male
  Weight: 111 kg

DRUGS (12)
  1. IPILIMUMAB [Suspect]
     Indication: MALIGNANT MELANOMA
     Dosage: dse:21Dc11,Removed frm protocol:15fb12.Cyc3 interuptd+resumed:24Jan12,Dy7.Last administ dt:18Jan12
     Route: 042
     Dates: start: 20111130
  2. PREDNISONE [Concomitant]
     Dosage: 6tabs,dose reduced:5mg every morn,2.5mg every evening
     Dates: start: 20120210
  3. ASPIRIN [Concomitant]
  4. NEXIUM [Concomitant]
  5. LIPITOR [Concomitant]
  6. LISINOPRIL [Concomitant]
  7. HYDROCHLOROTHIAZIDE [Concomitant]
  8. LOMOTIL [Concomitant]
     Dosage: tab
     Route: 048
  9. PERCOCET [Concomitant]
     Dosage: tab
     Route: 048
  10. OMEPRAZOLE [Concomitant]
     Dosage: 1df=1cap
     Route: 048
  11. CENTRUM SILVER [Concomitant]
  12. ACETAMINOPHEN [Concomitant]

REACTIONS (5)
  - Headache [Recovered/Resolved with Sequelae]
  - Ophthalmoplegia [Unknown]
  - Orbital pseudotumour [Unknown]
  - Uveitis [Unknown]
  - Conjunctivitis [Not Recovered/Not Resolved]
